FAERS Safety Report 9740425 (Version 1)
Quarter: 2013Q4

REPORT INFORMATION
  Report Type: Spontaneous
  Country: JP (occurrence: JP)
  Receive Date: 20131209
  Receipt Date: 20131209
  Transmission Date: 20140711
  Serious: Yes (Death)
  Sender: FDA-Public Use
  Company Number: JP-BAXTER-2013BAX047940

PATIENT
  Sex: Male
  Weight: 60 kg

DRUGS (1)
  1. ADVATE 2000 [Suspect]
     Indication: FACTOR VIII DEFICIENCY
     Route: 042
     Dates: end: 201310

REACTIONS (1)
  - Death [Fatal]
